FAERS Safety Report 9515659 (Version 1)
Quarter: 2013Q1

REPORT INFORMATION
  Report Type: Spontaneous
  Country: US (occurrence: None)
  Receive Date: 20130305
  Receipt Date: 20130305
  Transmission Date: 20140127
  Serious: Yes (Other)
  Sender: FDA-Public Use
  Company Number: 163-21880-12122888

PATIENT
  Age: 76 Year
  Sex: Female
  Weight: 55.34 kg

DRUGS (9)
  1. REVLIMID (LENALIDOMIDE) (25 MILLIGRAM, CAPSULES) [Suspect]
     Indication: PLASMA CELL MYELOMA
     Dosage: 25 MG, 1 IN 1 D, PO
     Route: 048
     Dates: start: 20101028
  2. ALPHAGAN P (BRIMONDIDINE TARTRATE) (UNKNOWN) [Concomitant]
  3. CALTRATE-600 (CALCIUM CARBONATE) (UNKNOWN) [Concomitant]
  4. DEXAMETHASONE (DEXAMETHASONE) (UNKNOWN)? [Concomitant]
  5. MULTIVITAMINS (MULTIVITAMINS) (CAPSULES)? [Concomitant]
  6. SERTRALINE HCL (SERTRALINE HYDROCHLORIDE) (UNKNOWN) [Concomitant]
  7. SF (SODIUM FLUORIDE) (GEL) [Concomitant]
  8. VITAMIN D (ERGOCALCIFEROL) (UNKNOWN) [Concomitant]
  9. ZOMETA (ZOLEDRONIC ACID) (UNKNOWN) [Concomitant]

REACTIONS (1)
  - Ocular hypertension [None]
